FAERS Safety Report 20604644 (Version 1)
Quarter: 2022Q1

REPORT INFORMATION
  Report Type: Spontaneous
  Country: None (occurrence: US)
  Receive Date: 20220316
  Receipt Date: 20220316
  Transmission Date: 20220423
  Serious: No
  Sender: FDA-Public Use
  Company Number: US-Jiangsu Hengrui Medicine Co., Ltd.-2126861

PATIENT
  Age: 73 Year
  Sex: Male

DRUGS (8)
  1. OXALIPLATIN [Suspect]
     Active Substance: OXALIPLATIN
     Indication: Colon cancer
  2. LEUCOVORIN [Concomitant]
     Active Substance: LEUCOVORIN
  3. FLUOROURACIL [Concomitant]
     Active Substance: FLUOROURACIL
  4. GRANISETRON HYDROCHLORIDE [Concomitant]
     Active Substance: GRANISETRON HYDROCHLORIDE
     Route: 040
  5. DEXAMETHASONE [Concomitant]
     Active Substance: DEXAMETHASONE
  6. GLIPIZIDE [Concomitant]
     Active Substance: GLIPIZIDE
  7. ASPIRIN                            /00002701/ [Concomitant]
  8. LOVASTATIN [Concomitant]
     Active Substance: LOVASTATIN

REACTIONS (2)
  - Flushing [Recovered/Resolved]
  - Dyspnoea [Recovered/Resolved]
